FAERS Safety Report 4780138-X (Version None)
Quarter: 2005Q3

REPORT INFORMATION
  Report Type: 
  Country: None (occurrence: None)
  Receive Date: 20050914
  Receipt Date: 20050421
  Transmission Date: 20060218
  Serious: Yes (Hospitalization)
  Sender: FDA-Public Use
  Company Number: 163-20785-05040455

PATIENT
  Age: 49 Year
  Sex: Male
  Weight: 84.5 kg

DRUGS (7)
  1. THALOMID [Suspect]
     Indication: SARCOMA
     Dosage: 200 MG, DAILY, DAYS 7-21, 28-42, ORAL
     Route: 048
     Dates: start: 20050405
  2. MESNA [Suspect]
     Indication: SARCOMA
     Dosage: 2500 MG/M2/D, CIV X4 DAYS, DAYS 1-4, 22-25, 43-46, UNKNOWN
     Dates: start: 20050405
  3. DOXORUBICIN HCL [Suspect]
     Indication: SARCOMA
     Dosage: 20 MG/M2/D, CIV X3 DAYS, DAYS 1-3, 22-24, 43-45, UNKNOWN
     Dates: start: 20050405
  4. IFOSFAMIDE [Suspect]
     Indication: SARCOMA
     Dosage: 2500 MG/M2/D, CIV X3 DAYS, DAYS 1-3, 22-24, 43-45
     Dates: start: 20050405
  5. DACARBAZINE [Suspect]
     Indication: SARCOMA
     Dosage: 225 MG/M2/D, CIV X3 DAYS, DAYS 1-3, 22-24, 43-45,
     Dates: start: 20050405
  6. G-CSF (GRANULOCYTE COLONY STIMULATING FACTOR) (UNKNOWN) [Suspect]
     Indication: SARCOMA
     Dosage: 5 UG/KG/D, QD SQ STARTING DAY 5 UNTIL ANC }10,000, UNKNOWN
  7. RADIATION (UNKNOWN) [Suspect]
     Indication: SARCOMA
     Dosage: 22 GY IN 11 FRACTION OVER 15 DAYS, DAYS 7-21, 28-42, UNKNOWN
     Dates: start: 20050405

REACTIONS (2)
  - NEUTROPHIL COUNT DECREASED [None]
  - WHITE BLOOD CELL COUNT DECREASED [None]
